FAERS Safety Report 4471760-9 (Version None)
Quarter: 2004Q4

REPORT INFORMATION
  Report Type: 
  Country: None (occurrence: None)
  Receive Date: 20041012
  Receipt Date: 20040322
  Transmission Date: 20050328
  Serious: Yes (Hospitalization, Other)
  Sender: FDA-Public Use
  Company Number: PHEH2004US03311

PATIENT
  Age: 63 Year
  Sex: Male

DRUGS (3)
  1. LOTENSIN [Suspect]
     Indication: HYPERTENSION
     Dosage: 10 MG, QD
     Dates: start: 19990101, end: 20040901
  2. XANAX [Concomitant]
  3. HYDROCHLOROTHIAZIDE [Concomitant]

REACTIONS (7)
  - ASTHMA [None]
  - CHEST DISCOMFORT [None]
  - DEAFNESS [None]
  - NASAL CONGESTION [None]
  - PYREXIA [None]
  - TINNITUS [None]
  - VERTIGO [None]
